FAERS Safety Report 6944356-4 (Version None)
Quarter: 2010Q3

REPORT INFORMATION
  Report Type: 
  Country: None (occurrence: None)
  Receive Date: 20100827
  Receipt Date: 20100818
  Transmission Date: 20110219
  Serious: No
  Sender: FDA-Public Use
  Company Number: 2009BI022901

PATIENT
  Age: 39 Year
  Sex: Female

DRUGS (1)
  1. TYSABRI [Suspect]
     Indication: MULTIPLE SCLEROSIS
     Route: 042
     Dates: start: 20090407

REACTIONS (4)
  - FATIGUE [None]
  - MULTIPLE SCLEROSIS [None]
  - PERONEAL NERVE PALSY [None]
  - SOMNOLENCE [None]
